FAERS Safety Report 24610654 (Version 1)
Quarter: 2024Q4

REPORT INFORMATION
  Report Type: Spontaneous
  Country: GB (occurrence: GB)
  Receive Date: 20241112
  Receipt Date: 20241112
  Transmission Date: 20250115
  Serious: Yes (Other)
  Sender: GE HEALTHCARE
  Company Number: None

PATIENT
  Age: 81 Year
  Sex: Female

DRUGS (2)
  1. OMNIPAQUE [Suspect]
     Active Substance: IOHEXOL
     Indication: Computerised tomogram intestine
     Dosage: 30 ML, TOTAL
     Route: 048
     Dates: start: 20241024, end: 20241024
  2. MAGNESIUM CITRATE\SODIUM PICOSULFATE [Suspect]
     Active Substance: MAGNESIUM CITRATE\SODIUM PICOSULFATE
     Indication: Computerised tomogram
     Dosage: 2 DF
     Route: 048
     Dates: start: 20241024, end: 20241024

REACTIONS (2)
  - Hallucination [Recovered/Resolved]
  - Diarrhoea [Recovered/Resolved]

NARRATIVE: CASE EVENT DATE: 20241024
